FAERS Safety Report 6580203-0 (Version None)
Quarter: 2010Q1

REPORT INFORMATION
  Report Type: 
  Country: None (occurrence: None)
  Receive Date: 20100212
  Receipt Date: 20100205
  Transmission Date: 20100710
  Serious: Yes (Disabling)
  Sender: FDA-Public Use
  Company Number: US-ASTRAZENECA-2010SE05329

PATIENT
  Age: 48 Year
  Sex: Female
  Weight: 88.5 kg

DRUGS (1)
  1. SEROQUEL [Suspect]
     Indication: BIPOLAR DISORDER
     Route: 048
     Dates: start: 20040101, end: 20080101

REACTIONS (5)
  - ACCIDENT [None]
  - DEPRESSION [None]
  - DRUG DOSE OMISSION [None]
  - HALLUCINATIONS, MIXED [None]
  - MENTAL DISORDER [None]
